FAERS Safety Report 18223907 (Version 1)
Quarter: 2020Q3

REPORT INFORMATION
  Report Type: Spontaneous
  Country: NL (occurrence: FR)
  Receive Date: 20200902
  Receipt Date: 20200902
  Transmission Date: 20201103
  Serious: Yes (Other)
  Sender: FDA-Public Use
  Company Number: FR-FRESENIUS KABI-FK202008689

PATIENT
  Age: 25 Year
  Sex: Female
  Weight: 94 kg

DRUGS (8)
  1. ZOPICLONE [Suspect]
     Active Substance: ZOPICLONE
     Indication: PRODUCT USED FOR UNKNOWN INDICATION
     Dosage: 7.5 MG DAILY
     Route: 048
     Dates: start: 20200716, end: 20200726
  2. PANTOPRAZOLE SODIUM SESQUIHYDRATE [Suspect]
     Active Substance: PANTOPRAZOLE SODIUM
     Indication: PROPHYLAXIS
     Dosage: 20 MG DAILY
     Route: 048
     Dates: start: 20200710, end: 20200726
  3. PREGABALIN. [Suspect]
     Active Substance: PREGABALIN
     Indication: PAIN
     Dosage: 225 MG DAILY
     Route: 048
     Dates: start: 20200716, end: 20200727
  4. ENOXAPARIN SODIUM. [Concomitant]
     Active Substance: ENOXAPARIN SODIUM
     Indication: PRODUCT USED FOR UNKNOWN INDICATION
     Dosage: 18000 IU DAILY
     Route: 058
  5. PAROXETINE HYDROCHLORIDE. [Suspect]
     Active Substance: PAROXETINE HYDROCHLORIDE
     Indication: DEPRESSION
     Dosage: 20 MG DAILY
     Route: 048
     Dates: start: 20200713, end: 20200726
  6. CEFOTAXIME [Suspect]
     Active Substance: CEFOTAXIME SODIUM
     Indication: CENTRAL NERVOUS SYSTEM INFECTION
     Dosage: 24 G DAILY
     Route: 041
     Dates: start: 20200712, end: 20200724
  7. LINEZOLID KABI [Suspect]
     Active Substance: LINEZOLID
     Indication: CENTRAL NERVOUS SYSTEM INFECTION
     Dosage: 1200 MG DAILY
     Route: 041
     Dates: start: 20200712, end: 20200727
  8. PARACETAMOL [Concomitant]
     Active Substance: ACETAMINOPHEN
     Indication: PRODUCT USED FOR UNKNOWN INDICATION
     Dosage: 4 G DAILY
     Route: 048

REACTIONS (1)
  - Hepatocellular injury [Recovering/Resolving]

NARRATIVE: CASE EVENT DATE: 20200721
